FAERS Safety Report 23332376 (Version 2)
Quarter: 2024Q1

REPORT INFORMATION
  Report Type: Spontaneous
  Country: HR (occurrence: HR)
  Receive Date: 20231222
  Receipt Date: 20240106
  Transmission Date: 20240410
  Serious: Yes (Hospitalization)
  Sender: FDA-Public Use
  Company Number: HR-BAXTER-2023BAX029038

PATIENT
  Age: 69 Year
  Sex: Male
  Weight: 95 kg

DRUGS (15)
  1. CYCLOPHOSPHAMIDE [Suspect]
     Active Substance: CYCLOPHOSPHAMIDE
     Indication: Diffuse large B-cell lymphoma
     Dosage: 1700 MG, Q3W
     Route: 042
     Dates: start: 20230705
  2. DOXORUBICIN [Suspect]
     Active Substance: DOXORUBICIN
     Indication: Diffuse large B-cell lymphoma
     Dosage: 110 MG, EVERY 3 WEEKS
     Route: 042
     Dates: start: 20230705
  3. EPCORITAMAB [Suspect]
     Active Substance: EPCORITAMAB
     Dosage: 0.16 MG, PRIMING DOSE, C1, D1, TOTAL
     Route: 058
     Dates: start: 20230705, end: 20230705
  4. EPCORITAMAB [Suspect]
     Active Substance: EPCORITAMAB
     Indication: Diffuse large B-cell lymphoma
     Dosage: 0.8 MG, INTERMEDIATE DOSE, C1, D8, TOTAL
     Route: 058
     Dates: start: 20230712, end: 20230712
  5. EPCORITAMAB [Suspect]
     Active Substance: EPCORITAMAB
     Dosage: 48 MG, FULL DOSE, C1, D15, TOTAL
     Route: 058
     Dates: start: 20230719, end: 20230719
  6. EPCORITAMAB [Suspect]
     Active Substance: EPCORITAMAB
     Dosage: 48 MG, EVERY 1 WEEKS
     Route: 058
     Dates: start: 20230726, end: 20230803
  7. PREDNISONE [Suspect]
     Active Substance: PREDNISONE
     Indication: Diffuse large B-cell lymphoma
     Dosage: 100 MG, DAILY C1-6, DAY 1-5
     Route: 048
     Dates: start: 20230705
  8. RITUXIMAB [Suspect]
     Active Substance: RITUXIMAB
     Indication: Diffuse large B-cell lymphoma
     Dosage: 800 MG
     Route: 042
     Dates: start: 20230705
  9. VINCRISTINE [Suspect]
     Active Substance: VINCRISTINE
     Indication: Diffuse large B-cell lymphoma
     Dosage: 2 MG, Q3W (INJECTION (PFT))
     Route: 042
     Dates: start: 20230705
  10. INDAPAMIDE\PERINDOPRIL ERBUMINE [Concomitant]
     Active Substance: INDAPAMIDE\PERINDOPRIL ERBUMINE
     Indication: Hypertension
     Dosage: EVERY 1 DAYS, (START DATE: 2003)
     Route: 065
  11. CONTROLOC [Concomitant]
     Active Substance: PANTOPRAZOLE SODIUM
     Indication: Gastrooesophageal reflux prophylaxis
     Dosage: 40 MG, EVERY 1 DAYS ROUTE OF ADMIN (FREE TEXT): UNKNOWN ROUTE
     Route: 065
     Dates: start: 20230501
  12. LEVOFLOXACIN [Concomitant]
     Active Substance: LEVOFLOXACIN
     Indication: Asymptomatic bacteriuria
     Dosage: 500 MG, EVERY 1 DAYS ROUTE OF ADMIN (FREE TEXT): UNKNOWN ROUTE
     Route: 065
     Dates: start: 20230803
  13. ACETAMINOPHEN [Concomitant]
     Active Substance: ACETAMINOPHEN
     Indication: Cytokine release syndrome
     Dosage: 1000 MG, EVERY 1 DAYS
     Route: 065
     Dates: start: 20230720
  14. SULFAMETHOXAZOLE\TRIMETHOPRIM [Concomitant]
     Active Substance: SULFAMETHOXAZOLE\TRIMETHOPRIM
     Indication: Antifungal prophylaxis
     Dosage: 2 X 960 MG, 3/WEEKS ROUTE OF ADMIN (FREE TEXT): UNKNOWN ROUTE
     Route: 065
     Dates: start: 20230705
  15. FOSFOMYCIN TROMETHAMINE [Concomitant]
     Active Substance: FOSFOMYCIN TROMETHAMINE
     Indication: Asymptomatic bacteriuria
     Dosage: 3 G, TOTAL
     Route: 065
     Dates: start: 20230726, end: 20230726

REACTIONS (3)
  - Pyrexia [Not Recovered/Not Resolved]
  - Abdominal pain upper [Not Recovered/Not Resolved]
  - COVID-19 [Recovered/Resolved]

NARRATIVE: CASE EVENT DATE: 20230809
